FAERS Safety Report 8988221 (Version 1)
Quarter: 2012Q4

REPORT INFORMATION
  Report Type: 
  Country: FR (occurrence: FR)
  Receive Date: 20121227
  Receipt Date: 20121227
  Transmission Date: 20130627
  Serious: Yes (Hospitalization, Other)
  Sender: FDA-Public Use
  Company Number: FR-WATSON-2012-22785

PATIENT
  Age: 78 Year

DRUGS (1)
  1. PREDNISOLONE (UNKNOWN) [Suspect]
     Indication: POLYMYALGIA RHEUMATICA
     Dosage: 100 mg, daily for 2 days and then decresing over 10 days
     Route: 048

REACTIONS (4)
  - Lyme disease [Recovered/Resolved]
  - Meningoradiculitis [Recovered/Resolved]
  - Condition aggravated [Recovered/Resolved]
  - Erythema migrans [Recovered/Resolved]
